FAERS Safety Report 9148625 (Version 1)
Quarter: 2013Q1

REPORT INFORMATION
  Report Type: Report from Study
  Country: IT (occurrence: IT)
  Receive Date: 20130308
  Receipt Date: 20130308
  Transmission Date: 20140127
  Serious: Yes (Other)
  Sender: FDA-Public Use
  Company Number: IT-JNJFOC-20130217081

PATIENT
  Sex: Male
  Weight: 70 kg

DRUGS (1)
  1. REMICADE [Suspect]
     Indication: RHEUMATOID ARTHRITIS
     Dosage: DOSE 3-3.99 MG/KG
     Route: 042
     Dates: start: 201105

REACTIONS (5)
  - Necrosis [Unknown]
  - Cellulitis [Unknown]
  - Erythema [Unknown]
  - Induration [Unknown]
  - Pain [Unknown]
